FAERS Safety Report 8945628 (Version 2)
Quarter: 2013Q1

REPORT INFORMATION
  Report Type: Spontaneous
  Country: US (occurrence: US)
  Receive Date: 20121205
  Receipt Date: 20130103
  Transmission Date: 20140127
  Serious: Yes (Other)
  Sender: FDA-Public Use
  Company Number: US-TEVA-373604USA

PATIENT
  Age: 61 Year
  Sex: Male

DRUGS (5)
  1. FOLINIC ACID [Suspect]
     Indication: COLORECTAL CANCER METASTATIC
     Dosage: EVERY CYCLE
     Route: 042
     Dates: start: 20121112, end: 20121112
  2. ZIV-AFLIBERCEPT [Suspect]
     Indication: COLORECTAL CANCER METASTATIC
     Dosage: 400 MG EVERY CYCLE
     Route: 041
     Dates: start: 20121112, end: 20121112
  3. FLUOROURACIL [Suspect]
     Indication: COLORECTAL CANCER METASTATIC
     Dosage: EVERY CYCLE
     Route: 042
     Dates: start: 20121112, end: 20121112
  4. IRINOTECAN [Suspect]
     Indication: COLORECTAL CANCER METASTATIC
     Dosage: EVERY CYCLE
     Route: 042
     Dates: start: 20121112, end: 20121112
  5. OXALIPLATIN [Suspect]

REACTIONS (1)
  - Chest pain [Recovered/Resolved]
